FAERS Safety Report 7265896-7 (Version None)
Quarter: 2011Q1

REPORT INFORMATION
  Report Type: 
  Country: None (occurrence: None)
  Receive Date: 20110131
  Receipt Date: 20110124
  Transmission Date: 20110831
  Serious: Yes (Other)
  Sender: FDA-Public Use
  Company Number: B0695580A

PATIENT
  Sex: Female

DRUGS (4)
  1. LAMICTAL [Suspect]
     Indication: COMPLEX PARTIAL SEIZURES
     Route: 065
  2. CODEINE [Concomitant]
     Indication: PAIN
  3. ACETAMINOPHEN [Concomitant]
  4. NEUROFEN [Concomitant]

REACTIONS (10)
  - CONVULSION [None]
  - IRRITABILITY [None]
  - DRUG INEFFECTIVE [None]
  - MOOD ALTERED [None]
  - WEIGHT INCREASED [None]
  - PRODUCT QUALITY ISSUE [None]
  - ASTHENIA [None]
  - MALAISE [None]
  - FEELING ABNORMAL [None]
  - HYPERSOMNIA [None]
